FAERS Safety Report 24332145 (Version 1)
Quarter: 2024Q3

REPORT INFORMATION
  Report Type: Spontaneous
  Country: FR (occurrence: FR)
  Receive Date: 20240918
  Receipt Date: 20240918
  Transmission Date: 20241017
  Serious: Yes (Hospitalization)
  Sender: AUROBINDO
  Company Number: FR-AFSSAPS-NC2024001068

PATIENT
  Age: 85 Year
  Sex: Male

DRUGS (1)
  1. FESOTERODINE [Suspect]
     Active Substance: FESOTERODINE
     Indication: Hypertonic bladder
     Dosage: 8 MILLIGRAM, ONCE A DAY
     Route: 048
     Dates: start: 20240702

REACTIONS (2)
  - Rash maculo-papular [Recovering/Resolving]
  - Eosinophilia [Recovered/Resolved]

NARRATIVE: CASE EVENT DATE: 20240712
